FAERS Safety Report 6530894-5 (Version None)
Quarter: 2010Q1

REPORT INFORMATION
  Report Type: 
  Country: None (occurrence: None)
  Receive Date: 20100108
  Receipt Date: 20090514
  Transmission Date: 20100710
  Serious: No
  Sender: FDA-Public Use
  Company Number: A0784328A

PATIENT
  Age: 73 Year
  Sex: Male

DRUGS (1)
  1. LOVAZA [Suspect]
     Dosage: 2G TWICE PER DAY
     Route: 048
     Dates: start: 20090114

REACTIONS (2)
  - HICCUPS [None]
  - RASH [None]
